FAERS Safety Report 18530236 (Version 8)
Quarter: 2021Q1

REPORT INFORMATION
  Report Type: Report from Study
  Country: US (occurrence: US)
  Receive Date: 20201120
  Receipt Date: 20210225
  Transmission Date: 20210419
  Serious: Yes (Hospitalization)
  Sender: FDA-Public Use
  Company Number: US-SEATTLE GENETICS-2020SGN04962

PATIENT
  Sex: Female

DRUGS (5)
  1. TUCATINIB [Suspect]
     Active Substance: TUCATINIB
     Indication: PRODUCT USED FOR UNKNOWN INDICATION
     Dosage: 50 MG, UNK
     Route: 048
  2. HERCEPTIN [Concomitant]
     Active Substance: TRASTUZUMAB
  3. TUCATINIB [Suspect]
     Active Substance: TUCATINIB
     Dosage: 50 MG, BID
     Route: 048
  4. TUCATINIB [Suspect]
     Active Substance: TUCATINIB
     Dosage: 150 MG
     Route: 048
  5. CAPECITABINE. [Concomitant]
     Active Substance: CAPECITABINE

REACTIONS (6)
  - Hospitalisation [Unknown]
  - Diarrhoea [Unknown]
  - Pain [Unknown]
  - Poor quality sleep [Unknown]
  - Underdose [Unknown]
  - Product distribution issue [Unknown]
